FAERS Safety Report 15643701 (Version 10)
Quarter: 2021Q1

REPORT INFORMATION
  Report Type: Spontaneous
  Country: US (occurrence: US)
  Receive Date: 20181121
  Receipt Date: 20210212
  Transmission Date: 20210419
  Serious: No
  Sender: FDA-Public Use
  Company Number: US-PFIZER INC-2018478926

PATIENT
  Age: 57 Year
  Sex: Female

DRUGS (3)
  1. PRISTIQ EXTENDED?RELEASE [Suspect]
     Active Substance: DESVENLAFAXINE SUCCINATE
     Dosage: 25MG, 2X/DAY (WAS TOLD TO TAKE 25 IN THE MORNING AND 25 AT NIGHT)
  2. PRISTIQ EXTENDED?RELEASE [Suspect]
     Active Substance: DESVENLAFAXINE SUCCINATE
     Dosage: 50 MG, DAILY (1 TABLET A DAY TO 2 TABLETS A DAY)
  3. PRISTIQ EXTENDED?RELEASE [Suspect]
     Active Substance: DESVENLAFAXINE SUCCINATE
     Dosage: 25 MG, DAILY (1 TABLET A DAY TO 2 TABLETS A DAY)

REACTIONS (6)
  - Tremor [Unknown]
  - Anxiety [Unknown]
  - Panic reaction [Unknown]
  - Bedridden [Unknown]
  - Eye disorder [Unknown]
  - Depressed mood [Unknown]
